FAERS Safety Report 6403403-9 (Version None)
Quarter: 2009Q4

REPORT INFORMATION
  Report Type: 
  Country: None (occurrence: None)
  Receive Date: 20091016
  Receipt Date: 20091013
  Transmission Date: 20100525
  Serious: Yes (Death, Hospitalization)
  Sender: FDA-Public Use
  Company Number: PT-BRISTOL-MYERS SQUIBB COMPANY-14807218

PATIENT
  Age: 72 Year
  Sex: Female

DRUGS (1)
  1. DASATINIB [Suspect]
     Dosage: BEGAN TREATMENT ABOUT 3 YEARS AGO
     Route: 048

REACTIONS (3)
  - DEATH [None]
  - DRUG RESISTANCE [None]
  - PLEURAL EFFUSION [None]
